FAERS Safety Report 6883569-7 (Version None)
Quarter: 2010Q3

REPORT INFORMATION
  Report Type: 
  Country: None (occurrence: None)
  Receive Date: 20100727
  Receipt Date: 20100712
  Transmission Date: 20110219
  Serious: Yes (Other)
  Sender: FDA-Public Use
  Company Number: ACO_00897_2010

PATIENT
  Sex: Male
  Weight: 70.3075 kg

DRUGS (10)
  1. AMPYRA [Suspect]
     Indication: MULTIPLE SCLEROSIS
     Dosage: 10 MG QD ORAL, 10 MG BID ORAL
     Route: 048
     Dates: start: 20100430, end: 20100507
  2. AMPYRA [Suspect]
     Indication: PRIMARY PROGRESSIVE MULTIPLE SCLEROSIS
     Dosage: 10 MG QD ORAL, 10 MG BID ORAL
     Route: 048
     Dates: start: 20100430, end: 20100507
  3. AMPYRA [Suspect]
     Indication: MULTIPLE SCLEROSIS
     Dosage: 10 MG QD ORAL, 10 MG BID ORAL
     Route: 048
     Dates: start: 20100508, end: 20100611
  4. AMPYRA [Suspect]
     Indication: PRIMARY PROGRESSIVE MULTIPLE SCLEROSIS
     Dosage: 10 MG QD ORAL, 10 MG BID ORAL
     Route: 048
     Dates: start: 20100508, end: 20100611
  5. FLOMAX [Concomitant]
  6. BUPROPION HCL [Concomitant]
  7. SERTRALINE HYDROCHLORIDE [Concomitant]
  8. BACLOFEN [Concomitant]
  9. GABAPENTIN [Concomitant]
  10. OTHER DRUGS FOR OBSTRUCTIVE AIRWAY DISEASE,INHALA [Concomitant]

REACTIONS (11)
  - BALANCE DISORDER [None]
  - CONDITION AGGRAVATED [None]
  - CONSTIPATION [None]
  - COORDINATION ABNORMAL [None]
  - DEPRESSION [None]
  - DIZZINESS [None]
  - DRUG EFFECT DECREASED [None]
  - DYSPHONIA [None]
  - FATIGUE [None]
  - GAIT DISTURBANCE [None]
  - THROAT IRRITATION [None]
